FAERS Safety Report 24774558 (Version 1)
Quarter: 2024Q4

REPORT INFORMATION
  Report Type: Spontaneous
  Country: SG (occurrence: SG)
  Receive Date: 20241225
  Receipt Date: 20241225
  Transmission Date: 20250115
  Serious: Yes (Other)
  Sender: NOVO NORDISK
  Company Number: SG-NOVOPROD-1306451

PATIENT
  Age: 26 Year
  Sex: Male

DRUGS (1)
  1. SAXENDA [Suspect]
     Active Substance: LIRAGLUTIDE
     Indication: Product used for unknown indication
     Dosage: 0.6 MG
     Dates: start: 20241012, end: 20241017

REACTIONS (5)
  - Visual acuity reduced [Unknown]
  - Condition aggravated [Unknown]
  - Cataract [Unknown]
  - Metamorphopsia [Unknown]
  - Blood glucose fluctuation [Unknown]

NARRATIVE: CASE EVENT DATE: 20241017
